FAERS Safety Report 14065831 (Version 1)
Quarter: 2017Q4

REPORT INFORMATION
  Report Type: Spontaneous
  Country: US (occurrence: None)
  Receive Date: 20171006
  Receipt Date: 20171006
  Transmission Date: 20180321
  Serious: No
  Sender: FDA-Public Use
  Company Number: None

PATIENT
  Sex: Female

DRUGS (1)
  1. OTEZLA [Suspect]
     Active Substance: APREMILAST
     Indication: DRUG THERAPY
     Route: 048
     Dates: start: 201706

REACTIONS (3)
  - Chills [None]
  - Therapy non-responder [None]
  - Therapy cessation [None]
